FAERS Safety Report 23422571 (Version 4)
Quarter: 2024Q2

REPORT INFORMATION
  Report Type: Spontaneous
  Country: US (occurrence: US)
  Receive Date: 20240119
  Receipt Date: 20240426
  Transmission Date: 20240716
  Serious: Yes (Other)
  Sender: FDA-Public Use
  Company Number: US-AVADEL CNS PHARMACEUTICALS, LLC-2024AVA00027

PATIENT
  Sex: Male
  Weight: 79.637 kg

DRUGS (8)
  1. LUMRYZ [Suspect]
     Active Substance: SODIUM OXYBATE
     Indication: Narcolepsy
     Dosage: 4.5 G
     Route: 048
     Dates: start: 202310, end: 2023
  2. LUMRYZ [Suspect]
     Active Substance: SODIUM OXYBATE
     Indication: Cataplexy
  3. LUMRYZ [Suspect]
     Active Substance: SODIUM OXYBATE
     Indication: Narcolepsy
     Dosage: 6 G, ONCE NIGHTLY AT 11 PM
     Route: 048
     Dates: start: 2023, end: 202312
  4. LUMRYZ [Suspect]
     Active Substance: SODIUM OXYBATE
     Indication: Cataplexy
  5. LUMRYZ [Suspect]
     Active Substance: SODIUM OXYBATE
     Indication: Narcolepsy
     Dosage: 7.5 G, ONCE NIGHTLY AT 11 PM
     Route: 048
     Dates: start: 202312, end: 20231223
  6. LUMRYZ [Suspect]
     Active Substance: SODIUM OXYBATE
     Indication: Cataplexy
     Dosage: 7.5 G, ONCE NIGHTLY AT 11 PM
     Route: 048
     Dates: start: 20240114, end: 20240116
  7. LUMRYZ [Suspect]
     Active Substance: SODIUM OXYBATE
     Dosage: 7.5 G, ONCE NIGHTLY AT 11 PM
     Route: 048
     Dates: start: 20240123, end: 202402
  8. ARMODAFINIL [Suspect]
     Active Substance: ARMODAFINIL
     Indication: Somnolence
     Dosage: 250 MG (1 TABLET), EVERY MORNING
     Dates: start: 20231130, end: 20231223

REACTIONS (10)
  - Anaphylactic reaction [Recovered/Resolved]
  - Insomnia [Unknown]
  - Terminal insomnia [Unknown]
  - Gait disturbance [Unknown]
  - Fatigue [Unknown]
  - Feeling abnormal [Unknown]
  - Nocturia [Unknown]
  - Somnolence [Recovered/Resolved]
  - Enuresis [Recovered/Resolved]
  - Therapeutic product effect incomplete [Recovered/Resolved]

NARRATIVE: CASE EVENT DATE: 20230101
